FAERS Safety Report 5215573-9 (Version None)
Quarter: 2007Q1

REPORT INFORMATION
  Report Type: 
  Country: None (occurrence: None)
  Receive Date: 20070117
  Receipt Date: 20070110
  Transmission Date: 20070707
  Serious: Yes (Hospitalization)
  Sender: FDA-Public Use
  Company Number: 2007AL000143

PATIENT
  Age: 91 Year
  Sex: Female

DRUGS (13)
  1. DIGOXIN [Suspect]
     Indication: ATRIAL FIBRILLATION
     Dosage: SEE IMAGE
     Route: 048
     Dates: start: 20060101
  2. DIGOXIN [Suspect]
     Indication: ATRIAL FIBRILLATION
     Dosage: SEE IMAGE
     Route: 048
     Dates: start: 20060101
  3. FLUOXETINE [Suspect]
     Indication: DEPRESSION
     Dosage: 20 MG; QD; PO
     Route: 048
     Dates: start: 20061208
  4. CALCIUM CARBONATE [Concomitant]
  5. ACETYLSALICYLIC ACID [Concomitant]
  6. LEVOTHYROXINE SODIUM [Concomitant]
  7. CO-AMILOPRUSE [Concomitant]
  8. BRICANYL [Concomitant]
  9. LOFEPRAMIINE [Concomitant]
  10. ACETAMINOPHEN [Concomitant]
  11. PULMICORT [Concomitant]
  12. SENNA [Concomitant]
  13. ZOPICLONE [Concomitant]

REACTIONS (2)
  - CONFUSIONAL STATE [None]
  - UNRESPONSIVE TO STIMULI [None]
